FAERS Safety Report 6397492-8 (Version None)
Quarter: 2009Q4

REPORT INFORMATION
  Report Type: 
  Country: None (occurrence: None)
  Receive Date: 20091012
  Receipt Date: 20090929
  Transmission Date: 20100525
  Serious: Yes (Disabling, Other)
  Sender: FDA-Public Use
  Company Number: GB-PFIZER INC-2009275243

PATIENT
  Age: 44 Year

DRUGS (1)
  1. CHAMPIX [Suspect]
     Dosage: 1 MG, UNK
     Route: 048
     Dates: start: 20090728, end: 20090811

REACTIONS (2)
  - INTENTIONAL OVERDOSE [None]
  - MOOD ALTERED [None]
